FAERS Safety Report 6423022-8 (Version None)
Quarter: 2009Q4

REPORT INFORMATION
  Report Type: 
  Country: None (occurrence: None)
  Receive Date: 20091102
  Receipt Date: 20090713
  Transmission Date: 20100525
  Serious: Yes (Death, Other)
  Sender: FDA-Public Use
  Company Number: PHEH2009US13183

PATIENT
  Sex: Female

DRUGS (3)
  1. EXJADE [Suspect]
     Indication: MYELODYSPLASTIC SYNDROME
     Dosage: 2000 MG, QD
     Route: 048
     Dates: start: 20080609
  2. EXJADE [Suspect]
     Indication: IRON OVERLOAD
  3. EXJADE [Suspect]
     Indication: BLOOD PRODUCT TRANSFUSION DEPENDENT

REACTIONS (6)
  - ABDOMINAL DISTENSION [None]
  - ASTHENIA [None]
  - DYSPNOEA [None]
  - MALIGNANT NEOPLASM PROGRESSION [None]
  - PYREXIA [None]
  - TRANSPLANT [None]
